FAERS Safety Report 8891594 (Version 1)
Quarter: 2012Q4

REPORT INFORMATION
  Report Type: 
  Country: US (occurrence: US)
  Receive Date: 20121107
  Receipt Date: 20121107
  Transmission Date: 20130627
  Serious: No
  Sender: FDA-Public Use
  Company Number: US-AMGEN-USASP2011056077

PATIENT
  Age: 39 Year
  Sex: Female
  Weight: 93.88 kg

DRUGS (9)
  1. ENBREL [Suspect]
     Dosage: 50 mg, qwk
  2. RELPAX [Concomitant]
     Dosage: 20 mg, UNK
  3. ZOLOFT [Concomitant]
     Dosage: 25 mg, UNK
  4. METHOTREXATE [Concomitant]
     Dosage: 2.5 mg, UNK
  5. LYRICA [Concomitant]
     Dosage: 25 mg, UNK
  6. FOLIC ACID [Concomitant]
     Dosage: 1 mg, UNK
  7. CALCIUM [Concomitant]
     Dosage: 500 mg, UNK
  8. TYLENOL [Concomitant]
     Dosage: 325 mg, UNK
  9. MELATONIN [Concomitant]
     Dosage: 1 mg, UNK

REACTIONS (1)
  - Injection site pain [Unknown]
